FAERS Safety Report 20723613 (Version 2)
Quarter: 2022Q2

REPORT INFORMATION
  Report Type: Spontaneous
  Country: ES (occurrence: ES)
  Receive Date: 20220419
  Receipt Date: 20220513
  Transmission Date: 20220720
  Serious: Yes (Hospitalization, Other)
  Sender: FDA-Public Use
  Company Number: ES-MLMSERVICE-20220404-3472235-2

PATIENT
  Age: 60 Year
  Sex: Male

DRUGS (31)
  1. ESCITALOPRAM [Interacting]
     Active Substance: ESCITALOPRAM OXALATE
     Indication: Schizoaffective disorder
     Dosage: 15 MG, QD
     Route: 065
     Dates: end: 201512
  2. ESCITALOPRAM [Interacting]
     Active Substance: ESCITALOPRAM OXALATE
     Dosage: 15 MG, QD
     Route: 065
     Dates: start: 201606, end: 201609
  3. LORAZEPAM [Suspect]
     Active Substance: LORAZEPAM
     Indication: Schizoaffective disorder
     Dosage: UNK
     Route: 065
     Dates: start: 2016
  4. LORAZEPAM [Suspect]
     Active Substance: LORAZEPAM
     Dosage: UNK
     Route: 065
     Dates: start: 201604, end: 2016
  5. LORAZEPAM [Suspect]
     Active Substance: LORAZEPAM
     Dosage: UNK
     Route: 065
     Dates: start: 2017
  6. QUETIAPINE FUMARATE [Suspect]
     Active Substance: QUETIAPINE FUMARATE
     Indication: Schizoaffective disorder
     Dosage: 100 MG, QD
     Route: 065
     Dates: start: 201604, end: 201606
  7. OLANZAPINE [Suspect]
     Active Substance: OLANZAPINE
     Indication: Schizoaffective disorder
     Dosage: 20 MG, QD
     Route: 065
     Dates: start: 201610, end: 201702
  8. OLANZAPINE [Suspect]
     Active Substance: OLANZAPINE
     Dosage: 400 MG
     Route: 065
     Dates: start: 201606, end: 201702
  9. OLANZAPINE [Suspect]
     Active Substance: OLANZAPINE
     Dosage: 400 MG, QD
     Route: 065
     Dates: start: 1994, end: 201512
  10. OLANZAPINE [Suspect]
     Active Substance: OLANZAPINE
     Dosage: 600 MG, QD
     Route: 065
     Dates: start: 201604, end: 201606
  11. OLANZAPINE [Suspect]
     Active Substance: OLANZAPINE
     Dosage: 800 MG, QD
     Route: 065
     Dates: start: 201512, end: 201604
  12. OLANZAPINE [Suspect]
     Active Substance: OLANZAPINE
     Dosage: 20 MG, QD
     Route: 065
     Dates: start: 201705, end: 201712
  13. CLOBAZAM [Interacting]
     Active Substance: CLOBAZAM
     Indication: Schizoaffective disorder
     Dosage: UNK
     Route: 065
     Dates: start: 2016, end: 2016
  14. FLUOXETINE [Suspect]
     Active Substance: FLUOXETINE HYDROCHLORIDE
     Indication: Schizoaffective disorder
     Dosage: 20 MG, QD
     Route: 065
     Dates: start: 201604, end: 201606
  15. AMISULPRIDE [Interacting]
     Active Substance: AMISULPRIDE
     Indication: Schizoaffective disorder
     Dosage: 400 MG, QD
     Route: 065
     Dates: start: 1994, end: 201512
  16. AMISULPRIDE [Interacting]
     Active Substance: AMISULPRIDE
     Dosage: 800 MG, QD
     Route: 065
     Dates: start: 201512, end: 201604
  17. AMISULPRIDE [Interacting]
     Active Substance: AMISULPRIDE
     Dosage: 600 MG, QD
     Route: 065
     Dates: start: 201604, end: 201606
  18. AMISULPRIDE [Interacting]
     Active Substance: AMISULPRIDE
     Dosage: 400 MG, QD
     Route: 065
     Dates: start: 201606, end: 201702
  19. VALPROATE SODIUM [Suspect]
     Active Substance: VALPROATE SODIUM
     Indication: Schizoaffective disorder
     Dosage: 1000 MG, QD
     Route: 065
     Dates: start: 201610, end: 201705
  20. VALPROATE SODIUM [Suspect]
     Active Substance: VALPROATE SODIUM
     Dosage: 500 MG, QD
     Route: 065
     Dates: start: 201606, end: 201609
  21. TRAZODONE [Interacting]
     Active Substance: TRAZODONE HYDROCHLORIDE
     Indication: Schizoaffective disorder
     Dosage: 200 MG, QD
     Route: 065
     Dates: start: 1994, end: 201512
  22. TRAZODONE [Interacting]
     Active Substance: TRAZODONE HYDROCHLORIDE
     Dosage: 200 MG, QD
     Route: 065
     Dates: start: 201606, end: 201609
  23. HALOPERIDOL [Suspect]
     Active Substance: HALOPERIDOL
     Indication: Mania
     Dosage: UNK
     Route: 065
     Dates: start: 2017
  24. LEVOMEPROMAZINE [Suspect]
     Active Substance: LEVOMEPROMAZINE
     Indication: Schizoaffective disorder
     Dosage: 100 MILLIGRAM, QD
     Route: 065
     Dates: start: 201610, end: 201702
  25. LORMETAZEPAM [Suspect]
     Active Substance: LORMETAZEPAM
     Indication: Schizoaffective disorder
     Dosage: UNK
     Route: 065
     Dates: start: 2017
  26. LORMETAZEPAM [Suspect]
     Active Substance: LORMETAZEPAM
     Dosage: UNK
     Route: 065
     Dates: start: 201604, end: 2016
  27. CLONAZEPAM [Suspect]
     Active Substance: CLONAZEPAM
     Indication: Schizoaffective disorder
     Dosage: UNK
     Route: 065
     Dates: start: 2017
  28. LITHIUM [Concomitant]
     Active Substance: LITHIUM
     Indication: Schizoaffective disorder
     Dosage: 800 MG, QD
     Route: 065
     Dates: start: 1994, end: 201604
  29. LITHIUM [Concomitant]
     Active Substance: LITHIUM
     Dosage: UNK
     Route: 065
  30. LITHIUM [Concomitant]
     Active Substance: LITHIUM
     Dosage: 600 MG, QD
     Route: 065
     Dates: start: 201702, end: 201705
  31. LITHIUM [Concomitant]
     Active Substance: LITHIUM
     Dosage: 1200 MG, QD
     Dates: start: 201712

REACTIONS (10)
  - Deep vein thrombosis [Unknown]
  - Extrapyramidal disorder [Unknown]
  - Drug level increased [Unknown]
  - Sedation [Unknown]
  - Drug interaction [Unknown]
  - Drug ineffective [Unknown]
  - Gastrointestinal haemorrhage [Unknown]
  - Drug-genetic interaction [Unknown]
  - Insomnia [Unknown]
  - Sedation complication [Unknown]

NARRATIVE: CASE EVENT DATE: 20160101
